FAERS Safety Report 19834566 (Version 1)
Quarter: 2021Q3

REPORT INFORMATION
  Report Type: Other
  Country: US (occurrence: US)
  Receive Date: 20210915
  Receipt Date: 20210915
  Transmission Date: 20211014
  Serious: No
  Sender: FDA-Public Use
  Company Number: US-LEADIANT BIOSCIENCES INC-2020STPI000492

PATIENT
  Sex: Male

DRUGS (1)
  1. MATULANE [Suspect]
     Active Substance: PROCARBAZINE HYDROCHLORIDE
     Indication: BRAIN NEOPLASM MALIGNANT
     Dosage: 150 MILLIGRAM, QD ON DAYS 8 TO 12 OF EACH OF 6 WEEK CYCLE
     Route: 048
     Dates: start: 20201030

REACTIONS (2)
  - Fatigue [Unknown]
  - Nausea [Unknown]
